FAERS Safety Report 7042941-5 (Version None)
Quarter: 2010Q4

REPORT INFORMATION
  Report Type: 
  Country: None (occurrence: None)
  Receive Date: 20101013
  Receipt Date: 20100226
  Transmission Date: 20110411
  Serious: No
  Sender: FDA-Public Use
  Company Number: US-ASTRAZENECA-2010SE08653

PATIENT
  Age: 75 Year
  Sex: Male
  Weight: 90.7 kg

DRUGS (9)
  1. SYMBICORT [Suspect]
     Indication: CHRONIC OBSTRUCTIVE PULMONARY DISEASE
     Dosage: 160/4.5 UG TWO PUFFS TWICE A DAY
     Route: 055
     Dates: start: 20100101
  2. SYMBICORT [Suspect]
     Dosage: 160/4.5 UG ONE PUFF TWICE A DAY
     Route: 055
     Dates: start: 20100201
  3. ACTOS [Concomitant]
     Indication: DIABETES MELLITUS
     Route: 048
  4. METFORMIN [Concomitant]
     Indication: DIABETES MELLITUS
     Route: 048
  5. CALCIUM [Concomitant]
     Route: 048
  6. M.V.I. [Concomitant]
     Route: 048
  7. ZOCOR [Concomitant]
     Route: 048
  8. ASPIRIN [Concomitant]
     Route: 048
  9. GABAPENTIN [Concomitant]
     Route: 048

REACTIONS (2)
  - DRUG EFFECT DECREASED [None]
  - DYSPNOEA [None]
